FAERS Safety Report 14561218 (Version 8)
Quarter: 2018Q2

REPORT INFORMATION
  Report Type: Spontaneous
  Country: US (occurrence: US)
  Receive Date: 20180222
  Receipt Date: 20180625
  Transmission Date: 20180711
  Serious: No
  Sender: FDA-Public Use
  Company Number: US-PFIZER INC-2018069121

PATIENT
  Age: 2 Year
  Sex: Female

DRUGS (11)
  1. BENADRYL [Concomitant]
     Active Substance: DIPHENHYDRAMINE HYDROCHLORIDE
     Dosage: UNK
     Route: 042
  2. ELELYSO [Suspect]
     Active Substance: TALIGLUCERASE ALFA
     Indication: GAUCHER^S DISEASE
     Dosage: UNK(20 ML/HR FOR 30 MIN, INCREASE BY 10ML EVERY 30 MIN AS TOLERATED TO MAX RATE OF 50 ML)
     Route: 042
     Dates: start: 20180214, end: 201802
  3. ELELYSO [Suspect]
     Active Substance: TALIGLUCERASE ALFA
     Indication: GAUCHER^S DISEASE TYPE III
     Dosage: UNK(20 ML/HR FOR 30 MIN, INCREASE BY 10ML EVERY 30 MIN AS TOLERATED TO MAX RATE OF 50 ML)
     Route: 042
     Dates: start: 20180228, end: 2018
  4. ELELYSO [Suspect]
     Active Substance: TALIGLUCERASE ALFA
     Dosage: 800 IU, UNK [EVERY 2 WEEKS]
  5. TYLENOL [Concomitant]
     Active Substance: ACETAMINOPHEN
     Dosage: UNK
     Route: 048
  6. ELELYSO [Suspect]
     Active Substance: TALIGLUCERASE ALFA
     Dosage: UNK(20 ML/HR FOR 30 MIN, INCREASE BY 10ML EVERY 30 MIN AS TOLERATED TO MAX RATE OF 50 ML)
     Route: 042
     Dates: start: 20180314, end: 2018
  7. ELELYSO [Suspect]
     Active Substance: TALIGLUCERASE ALFA
     Dosage: UNK (THIRD INFUSION)
  8. BENADRYL [Concomitant]
     Active Substance: DIPHENHYDRAMINE HYDROCHLORIDE
     Dosage: UNK
     Route: 048
  9. ELELYSO [Suspect]
     Active Substance: TALIGLUCERASE ALFA
     Dosage: 60 IU/KG, UNK(60 IU/KG, EVERY 2 WEEKS (Q 2WK)
     Route: 042
     Dates: end: 2018
  10. ELELYSO [Suspect]
     Active Substance: TALIGLUCERASE ALFA
     Dosage: UNK(FIRST INFUSION)
  11. ELELYSO [Suspect]
     Active Substance: TALIGLUCERASE ALFA
     Dosage: UNK (SECOND INFUSION)

REACTIONS (8)
  - Drug administered to patient of inappropriate age [Unknown]
  - Drug hypersensitivity [Unknown]
  - Cough [Recovered/Resolved]
  - Urticaria [Recovered/Resolved]
  - Rash [Recovered/Resolved]
  - Back pain [Recovered/Resolved]
  - Product use in unapproved indication [Unknown]
  - Irritability [Recovered/Resolved]

NARRATIVE: CASE EVENT DATE: 20180214
